FAERS Safety Report 22181824 (Version 1)
Quarter: 2023Q2

REPORT INFORMATION
  Report Type: Spontaneous
  Country: CA (occurrence: CA)
  Receive Date: 20230406
  Receipt Date: 20230406
  Transmission Date: 20230721
  Serious: Yes (Other)
  Sender: FDA-Public Use
  Company Number: CA-PFIZER INC-202300144633

PATIENT
  Age: 44 Year
  Sex: Male

DRUGS (2)
  1. XELJANZ [Suspect]
     Active Substance: TOFACITINIB CITRATE
     Indication: Colitis ulcerative
     Dosage: 1 DF, 2X/DAY 10 MG FOR 8 WEEKS FOLLOWED BY 5 MG.
     Route: 048
     Dates: start: 20220928
  2. MESALAMINE [Concomitant]
     Active Substance: MESALAMINE
     Dosage: 4 G, DAILY (1DF)

REACTIONS (4)
  - Haematochezia [Unknown]
  - Drug ineffective [Unknown]
  - Frequent bowel movements [Unknown]
  - Diarrhoea [Unknown]
